FAERS Safety Report 25189294 (Version 3)
Quarter: 2025Q2

REPORT INFORMATION
  Report Type: Report from Study
  Country: US (occurrence: US)
  Receive Date: 20250411
  Receipt Date: 20250521
  Transmission Date: 20250717
  Serious: Yes (Other)
  Sender: JOHNSON AND JOHNSON
  Company Number: US-JNJFOC-20250407309

PATIENT
  Age: 65 Year
  Sex: Female

DRUGS (1)
  1. SIMPONI [Suspect]
     Active Substance: GOLIMUMAB
     Indication: Product used for unknown indication
     Route: 058

REACTIONS (6)
  - Lower respiratory tract infection [Unknown]
  - Product dose omission issue [Unknown]
  - Device issue [Unknown]
  - Upper respiratory tract infection [Unknown]
  - Arthritis [Unknown]
  - Device defective [Unknown]

NARRATIVE: CASE EVENT DATE: 20250101
